FAERS Safety Report 6594331-7 (Version None)
Quarter: 2010Q1

REPORT INFORMATION
  Report Type: 
  Country: None (occurrence: None)
  Receive Date: 20100218
  Receipt Date: 20100218
  Transmission Date: 20100710
  Serious: Yes (Hospitalization)
  Sender: FDA-Public Use
  Company Number: None

PATIENT
  Age: 55 Year
  Sex: Male

DRUGS (2)
  1. BUPIVACAINE HCL [Suspect]
     Indication: SURGERY
  2. FENTANYL-100 [Suspect]

REACTIONS (1)
  - RASH PRURITIC [None]
